FAERS Safety Report 9671574 (Version 2)
Quarter: 2014Q1

REPORT INFORMATION
  Report Type: Spontaneous
  Country: US (occurrence: US)
  Receive Date: 20131106
  Receipt Date: 20140214
  Transmission Date: 20141002
  Serious: No
  Sender: FDA-Public Use
  Company Number: US-PFIZER INC-2013314961

PATIENT
  Age: 58 Year
  Sex: Female
  Weight: 81.18 kg

DRUGS (18)
  1. NEURONTIN [Suspect]
     Indication: RESTLESS LEGS SYNDROME
     Dosage: 1200 MG (2 TABLET OF 600 MG IN THE MORNING AND IF NEEDED TWO TABLET OF 600MG AT NIGHT), AS NEEDED
     Route: 048
  2. NEURONTIN [Suspect]
     Indication: PAIN IN EXTREMITY
  3. NEURONTIN [Suspect]
     Indication: PAIN IN EXTREMITY
  4. LYRICA [Suspect]
     Indication: RESTLESS LEGS SYNDROME
     Dosage: 150 MG (2 CAPSULES OF 75 MG), 2X/DAY
     Route: 048
     Dates: start: 20120904, end: 201212
  5. LYRICA [Suspect]
     Indication: PAIN IN EXTREMITY
  6. LYRICA [Suspect]
     Indication: PAIN IN EXTREMITY
  7. METOPROLOL [Concomitant]
     Indication: HYPERTENSION
     Dosage: 100 MG (2 TABLETS OF 50 MG), 2X/DAY
     Route: 048
  8. METOPROLOL [Concomitant]
     Dosage: 50 MG, 2 TABLET (S), 2XDAY
     Dates: start: 20070626
  9. SPIRIVA WITH HANDIHALER [Concomitant]
     Dosage: 18 UG (1 CAPSULE), 1X/DAY
     Dates: start: 20140120
  10. HYDROCODONE ACETAMINOPHEN [Concomitant]
     Dosage: 5 MG (1 TABLET), 3X/DAY
     Dates: start: 20131011
  11. VENTOLIN HFA 90 MG/ACTUATION AE [Concomitant]
     Dosage: 2 INHALATION(S), 6X/DAY
     Route: 055
     Dates: start: 20130507
  12. GABAPENTIN [Concomitant]
     Dosage: 600 MG (1 TABLET) 3X/DAY
     Dates: start: 20120904
  13. PRAVASTATIN SODIUM [Concomitant]
     Dosage: 40 MG (1 TABLET) 1X/DAY
     Dates: start: 20101126
  14. LISINOPRIL W/HYDROCHLOROTHIAZIDE [Concomitant]
     Dosage: 20 M, 1 TABLET, 1X/DAY
     Dates: start: 20101110
  15. CVS ENTERIC ASPIRIN [Concomitant]
     Dosage: 81 MG (1 TABLET), 1X/DAY
     Dates: start: 20080219
  16. PERCOGESIC [Concomitant]
     Dosage: PARACETAMOL 325, PHENYLTOLOXAMINE CITRATE 30, 1 TABLET (S) 2X/DAY
     Dates: start: 20080219
  17. METOCLOPRAMIDE [Concomitant]
     Dosage: 10 MG (1 TABLET), 2X/DAY
     Dates: start: 20080219
  18. ADVAIR DISKUS [Concomitant]
     Dosage: 500 MCG FLUTICASONE PROPIONATE,  50MCG SALMETEROL XINAFOATE, 2X/DAY (1 INHALATION, 2 X DAY)
     Route: 055
     Dates: start: 20140127

REACTIONS (2)
  - Off label use [Not Recovered/Not Resolved]
  - Neuropathy peripheral [Not Recovered/Not Resolved]
